FAERS Safety Report 20678978 (Version 1)
Quarter: 2022Q2

REPORT INFORMATION
  Report Type: Spontaneous
  Country: US (occurrence: US)
  Receive Date: 20220406
  Receipt Date: 20220406
  Transmission Date: 20220720
  Serious: Yes (Other)
  Sender: FDA-Public Use
  Company Number: US-ASTELLAS-2022US012681

PATIENT
  Age: 55 Year
  Sex: Female

DRUGS (4)
  1. GILTERITINIB [Suspect]
     Active Substance: GILTERITINIB
     Indication: FLT3 gene mutation
     Dosage: UNK UNK, UNKNOWN FREQ.
     Route: 065
  2. GILTERITINIB [Suspect]
     Active Substance: GILTERITINIB
     Indication: Leukaemia recurrent
  3. AZACITIDINE [Suspect]
     Active Substance: AZACITIDINE
     Indication: FLT3 gene mutation
     Dosage: UNK UNK, UNKNOWN FREQ.
     Route: 065
  4. AZACITIDINE [Suspect]
     Active Substance: AZACITIDINE
     Indication: Leukaemia recurrent

REACTIONS (3)
  - Thrombocytopenia [Unknown]
  - Anaemia [Unknown]
  - Diarrhoea [Unknown]
